FAERS Safety Report 16733838 (Version 1)
Quarter: 2019Q3

REPORT INFORMATION
  Report Type: Spontaneous
  Country: ES (occurrence: ES)
  Receive Date: 20190823
  Receipt Date: 20190823
  Transmission Date: 20191005
  Serious: Yes (Hospitalization, Other)
  Sender: FDA-Public Use
  Company Number: ES-AUROBINDO-AUR-APL-2019-055118

PATIENT

DRUGS (4)
  1. IBUPROFEN. [Suspect]
     Active Substance: IBUPROFEN
     Indication: PAIN
     Dosage: 1.2 GRAM, ONCE A DAY
     Route: 048
     Dates: start: 20180809, end: 20180809
  2. HIDROCLOROTIAZIDA [Concomitant]
     Active Substance: HYDROCHLOROTHIAZIDE
     Indication: HYPERTENSION
     Dosage: 12.5 MILLIGRAM, ONCE A DAY
     Route: 048
     Dates: start: 20180604, end: 20180810
  3. ENALAPRIL MALEATE. [Concomitant]
     Active Substance: ENALAPRIL MALEATE
     Indication: HYPERTENSION
     Dosage: 10 MILLIGRAM, ONCE A DAY
     Route: 048
     Dates: start: 20180604, end: 20180810
  4. ADIRO [Interacting]
     Active Substance: ASPIRIN
     Indication: PROPHYLAXIS
     Dosage: 100 MILLIGRAM, ONCE A DAY
     Route: 048
     Dates: start: 20180710, end: 20180810

REACTIONS (1)
  - Lower gastrointestinal haemorrhage [Recovered/Resolved]

NARRATIVE: CASE EVENT DATE: 20180810
